FAERS Safety Report 24664895 (Version 1)
Quarter: 2024Q4

REPORT INFORMATION
  Report Type: Spontaneous
  Country: US (occurrence: US)
  Receive Date: 20241126
  Receipt Date: 20241126
  Transmission Date: 20250114
  Serious: Yes (Hospitalization, Other)
  Sender: MYLAN
  Company Number: US-MYLANLABS-2024M1105364

PATIENT
  Age: 6 Decade
  Sex: Male

DRUGS (10)
  1. PREDNISONE [Suspect]
     Active Substance: PREDNISONE
     Indication: Rosai-Dorfman syndrome
     Dosage: 40 MILLIGRAM, QD
     Route: 048
  2. PREDNISONE [Suspect]
     Active Substance: PREDNISONE
     Indication: Respiratory distress
     Dosage: UNK UNK, QD, 30-40MG DAILY TREATMENT.
     Route: 048
  3. PREDNISONE [Suspect]
     Active Substance: PREDNISONE
     Indication: Hypoxia
     Dosage: 30 MILLIGRAM, DOSE BELOW 30MG (REBOUND EFFECT),
     Route: 048
  4. LENALIDOMIDE [Suspect]
     Active Substance: LENALIDOMIDE
     Indication: Rosai-Dorfman syndrome
     Dosage: 15 MILLIGRAM, QD, FOR 3WEEKS
     Route: 065
  5. LENALIDOMIDE [Suspect]
     Active Substance: LENALIDOMIDE
     Dosage: UNK, RESTARTED AND DISCONTINUED
     Route: 065
  6. RITUXIMAB [Suspect]
     Active Substance: RITUXIMAB
     Indication: Rosai-Dorfman syndrome
     Dosage: 500 MILLIGRAM/SQ. METER, QW,500 MG/M2 PER DOSE WEEKLY FOR 4?WEEKS
     Route: 065
  7. RITUXIMAB [Suspect]
     Active Substance: RITUXIMAB
     Dosage: 500 MILLIGRAM/SQ. METER, BIMONTHLY
     Route: 065
  8. RITUXIMAB [Suspect]
     Active Substance: RITUXIMAB
     Dosage: 500 MILLIGRAM/SQ. METER, Q3MONTHS
     Route: 065
  9. RITUXIMAB [Suspect]
     Active Substance: RITUXIMAB
     Dosage: UNK, RESTARTED AND DISCONTINUED
     Route: 065
  10. DEXAMETHASONE [Concomitant]
     Active Substance: DEXAMETHASONE
     Indication: Rosai-Dorfman syndrome
     Dosage: 4 MILLIGRAM, FROM MONDAY TO FRIDAY WEEKLY
     Route: 065

REACTIONS (8)
  - Rebound effect [Unknown]
  - Respiratory distress [Unknown]
  - Hypoxia [Unknown]
  - Drug ineffective [Unknown]
  - Neutropenia [Unknown]
  - Cytopenia [Recovering/Resolving]
  - Thrombocytopenia [Not Recovered/Not Resolved]
  - Off label use [Unknown]
